FAERS Safety Report 5295184-X (Version None)
Quarter: 2007Q2

REPORT INFORMATION
  Report Type: 
  Country: None (occurrence: None)
  Receive Date: 20070412
  Receipt Date: 20070405
  Transmission Date: 20071010
  Serious: Yes (Hospitalization)
  Sender: FDA-Public Use
  Company Number: US-ELI_LILLY_AND_COMPANY-US200704001962

PATIENT
  Age: 52 Year
  Sex: Female
  Weight: 58.503 kg

DRUGS (1)
  1. TERIPARATIDE [Suspect]
     Indication: OSTEOPOROSIS
     Route: 058
     Dates: start: 20050127, end: 20070210

REACTIONS (2)
  - INFECTION [None]
  - NEPHROLITHIASIS [None]
